FAERS Safety Report 20733759 (Version 2)
Quarter: 2022Q2

REPORT INFORMATION
  Report Type: Spontaneous
  Country: IT (occurrence: IT)
  Receive Date: 20220421
  Receipt Date: 20220503
  Transmission Date: 20220721
  Serious: Yes (Other)
  Sender: FDA-Public Use
  Company Number: IT-ADVANZ PHARMA-202204002276

PATIENT

DRUGS (2)
  1. ALFUZOSIN [Suspect]
     Active Substance: ALFUZOSIN
     Indication: Product used for unknown indication
     Dosage: 12 DOSAGE FORM, QD, XATRAL SLOW RELEASE  PROLONGED RELEASE TABLET
     Route: 065
  2. ALFUZOSIN [Suspect]
     Active Substance: ALFUZOSIN
     Dosage: UNK, QOD, XATRAL SLOW RELEASE  PROLONGED RELEASE TABLET
     Route: 065

REACTIONS (6)
  - Foreign body in throat [Unknown]
  - Choking [Unknown]
  - Dysphagia [Unknown]
  - Dyspnoea [Unknown]
  - Sensation of foreign body [Unknown]
  - Product use issue [Unknown]
